FAERS Safety Report 5493659-1 (Version None)
Quarter: 2007Q4

REPORT INFORMATION
  Report Type: 
  Country: None (occurrence: None)
  Receive Date: 20071023
  Receipt Date: 20071014
  Transmission Date: 20080405
  Serious: Yes (Other)
  Sender: FDA-Public Use
  Company Number: CH-ELI_LILLY_AND_COMPANY-CH200706003472

PATIENT
  Age: 49 Year
  Sex: Female
  Weight: 66.2 kg

DRUGS (8)
  1. CYMBALTA [Suspect]
     Indication: DEPRESSION
     Dosage: 30 MG, DAILY (1/D)
     Route: 048
  2. SEROQUEL [Concomitant]
     Indication: DEPRESSION
     Dosage: 25 MG, EACH EVENING
     Route: 048
  3. SEROQUEL [Concomitant]
     Dosage: 50 MG, LATE EVENING
     Route: 048
  4. DAFALGAN [Concomitant]
     Indication: PAIN
     Dosage: 1 G, EACH MORNING
     Route: 048
  5. DAFALGAN [Concomitant]
     Dosage: 1 G, EACH EVENING
     Route: 048
  6. SERESTA [Concomitant]
     Indication: SLEEP DISORDER
     Dosage: 15 MG, EACH EVENING
     Route: 048
  7. ZOLPIDEM TARTRATE [Concomitant]
     Indication: SLEEP DISORDER
     Dosage: 10 MG, EACH EVENING
     Route: 048
  8. MORPHINE [Concomitant]
     Indication: PAIN
     Dosage: 30 GTT, DAILY (1/D)
     Route: 048

REACTIONS (1)
  - RESTLESS LEGS SYNDROME [None]
